FAERS Safety Report 15632769 (Version 1)
Quarter: 2018Q4

REPORT INFORMATION
  Report Type: Report from Study
  Country: US (occurrence: US)
  Receive Date: 20181119
  Receipt Date: 20181119
  Transmission Date: 20190205
  Serious: Yes (Other)
  Sender: FDA-Public Use
  Company Number: US-SAKK-2018SA309389AA

PATIENT
  Sex: Female

DRUGS (2)
  1. INSULIN GLARGINE [Suspect]
     Active Substance: INSULIN GLARGINE
     Dosage: UNK UNK, BID
     Route: 058
  2. INSULIN GLARGINE [Suspect]
     Active Substance: INSULIN GLARGINE
     Dosage: UNK UNK, QD
     Route: 058

REACTIONS (6)
  - Product use issue [Unknown]
  - Pain in extremity [Not Recovered/Not Resolved]
  - Deafness [Not Recovered/Not Resolved]
  - Intentional product misuse [Unknown]
  - Abdominal discomfort [Not Recovered/Not Resolved]
  - Device issue [Unknown]
